FAERS Safety Report 9125782 (Version 1)
Quarter: 2013Q1

REPORT INFORMATION
  Report Type: Report from Study
  Country: DE (occurrence: DE)
  Receive Date: 20130227
  Receipt Date: 20130227
  Transmission Date: 20140127
  Serious: No
  Sender: FDA-Public Use
  Company Number: PHHY2013DE019305

PATIENT
  Sex: Male

DRUGS (6)
  1. AMN107 [Suspect]
     Indication: CHRONIC MYELOID LEUKAEMIA
     Dosage: 600 MG, QD
     Route: 048
     Dates: start: 20120117
  2. MIRTAZAPIN [Concomitant]
     Dosage: 15 MG,
     Dates: start: 20120630
  3. SAW PALMETTO [Concomitant]
     Dosage: 320 MG
     Dates: start: 20120630
  4. PANTOZOL [Concomitant]
     Dosage: 40 MG
     Dates: start: 20120630
  5. DECORTIN [Concomitant]
     Dosage: 25 MG,
     Dates: start: 20120725
  6. DEKRISTOL [Concomitant]
     Dosage: 20 MG, QW
     Dates: start: 20120707

REACTIONS (1)
  - Blood lactate dehydrogenase increased [Not Recovered/Not Resolved]
